FAERS Safety Report 21491737 (Version 2)
Quarter: 2023Q1

REPORT INFORMATION
  Report Type: Report from Study
  Country: US (occurrence: US)
  Receive Date: 20221021
  Receipt Date: 20230317
  Transmission Date: 20230417
  Serious: Yes (Hospitalization, Other)
  Sender: FDA-Public Use
  Company Number: US-TEVA-2022-US-2818136

PATIENT
  Age: 18 Year
  Sex: Male
  Weight: 103.1 kg

DRUGS (6)
  1. METHOTREXATE [Suspect]
     Active Substance: METHOTREXATE
     Indication: Acute lymphocytic leukaemia
     Dosage: 22.5 MILLIGRAM WEEKLY
     Route: 048
     Dates: start: 20210111, end: 20220922
  2. PREDNISONE [Suspect]
     Active Substance: PREDNISONE
     Indication: Acute lymphocytic leukaemia
     Dosage: 80 MILLIGRAM DAILY; 40 MILLIGRAM, BID D1-5, 29-33, 57-61; ORAL USE
     Route: 048
     Dates: start: 20210104, end: 20220920
  3. VINCRISTINE [Suspect]
     Active Substance: VINCRISTINE
     Indication: Acute lymphocytic leukaemia
     Dosage: 2 MILLIGRAM, ONCE D1, D29, D57
     Route: 042
     Dates: start: 20200213, end: 20220915
  4. RUXOLITINIB [Suspect]
     Active Substance: RUXOLITINIB
     Indication: Acute lymphocytic leukaemia
     Dosage: 100 MILLIGRAM DAILY;
     Route: 048
     Dates: start: 20200131, end: 20220925
  5. METHOTREXATE [Suspect]
     Active Substance: METHOTREXATE
     Indication: Acute lymphocytic leukaemia
     Dosage: 15 MILLIGRAM ONCE
     Route: 037
     Dates: start: 20200131, end: 20220818
  6. MERCAPTOPURINE [Suspect]
     Active Substance: MERCAPTOPURINE
     Indication: Acute lymphocytic leukaemia
     Dosage: 525 MG/WEEK
     Route: 048
     Dates: start: 20200131, end: 20220825

REACTIONS (4)
  - Pyrexia [Recovering/Resolving]
  - Pain in extremity [Recovering/Resolving]
  - Myositis [Unknown]
  - Sepsis [Unknown]

NARRATIVE: CASE EVENT DATE: 20220925
